FAERS Safety Report 7609026-8 (Version None)
Quarter: 2011Q3

REPORT INFORMATION
  Report Type: 
  Country: None (occurrence: None)
  Receive Date: 20110713
  Receipt Date: 20110713
  Transmission Date: 20111222
  Serious: Yes (Life-Threatening, Hospitalization, Congenital Anomaly, Other)
  Sender: FDA-Public Use
  Company Number: None

PATIENT
  Age: 2 Day
  Sex: Male
  Weight: 3.9917 kg

DRUGS (1)
  1. SERTRALINE HYDROCHLORIDE [Suspect]
     Indication: DEPRESSION
     Dosage: 50 OR 75MG QD OTHER 9 MONTHS PREGNANCY

REACTIONS (23)
  - LEFT VENTRICULAR HYPERTROPHY [None]
  - AFFECTIVE DISORDER [None]
  - SENSORY INTEGRATIVE DYSFUNCTION [None]
  - INFECTION [None]
  - NASOPHARYNGEAL REFLUX [None]
  - BALANCE DISORDER [None]
  - SICK SINUS SYNDROME [None]
  - FOOD ALLERGY [None]
  - CYANOSIS [None]
  - ENCEPHALOPATHY [None]
  - HYPERTENSION [None]
  - GASTROOESOPHAGEAL REFLUX DISEASE [None]
  - MATERNAL DRUGS AFFECTING FOETUS [None]
  - DYSPHAGIA [None]
  - COORDINATION ABNORMAL [None]
  - SLEEP DISORDER [None]
  - ASTHMA [None]
  - LARYNGEAL DISORDER [None]
  - DEVELOPMENTAL DELAY [None]
  - ATTENTION DEFICIT/HYPERACTIVITY DISORDER [None]
  - HYPERSENSITIVITY [None]
  - PNEUMONIA ASPIRATION [None]
  - SLEEP APNOEA SYNDROME [None]
